FAERS Safety Report 18763108 (Version 3)
Quarter: 2022Q4

REPORT INFORMATION
  Report Type: Other
  Country: US (occurrence: None)
  Receive Date: 20210120
  Receipt Date: 20221123
  Transmission Date: 20230112
  Serious: Yes (Other)
  Sender: FDA-Public Use
  Company Number: US-ROCHE-2751387

PATIENT
  Age: 83 Year
  Sex: Female

DRUGS (13)
  1. ESBRIET [Suspect]
     Active Substance: PIRFENIDONE
     Indication: Idiopathic pulmonary fibrosis
     Dosage: TAKE 1 TABLET BY MOUTH TWICE A DAY
     Route: 048
  2. ESBRIET [Suspect]
     Active Substance: PIRFENIDONE
     Indication: Dyspnoea
  3. ESBRIET [Suspect]
     Active Substance: PIRFENIDONE
     Indication: Cough
  4. ESBRIET [Suspect]
     Active Substance: PIRFENIDONE
     Indication: Diabetes insipidus
  5. ASPIRIN [Concomitant]
     Active Substance: ASPIRIN
  6. ATORVASTATIN CALCIUM [Concomitant]
     Active Substance: ATORVASTATIN CALCIUM
  7. BUPROPION HYDROCHLORIDE [Concomitant]
     Active Substance: BUPROPION HYDROCHLORIDE
  8. DILTIAZEM HYDROCHLORIDE [Concomitant]
     Active Substance: DILTIAZEM HYDROCHLORIDE
  9. ESOMEPRAZOLE MAGNESIUM [Concomitant]
     Active Substance: ESOMEPRAZOLE MAGNESIUM
  10. FENOFIBRATE [Concomitant]
     Active Substance: FENOFIBRATE
  11. METOPROLOL [Concomitant]
     Active Substance: METOPROLOL
  12. PREDNISONE [Concomitant]
     Active Substance: PREDNISONE
  13. LEVOTHYROXINE SODIUM [Concomitant]
     Active Substance: LEVOTHYROXINE SODIUM

REACTIONS (4)
  - Diabetes mellitus [Unknown]
  - Sinus disorder [Unknown]
  - Rhinorrhoea [Unknown]
  - Off label use [Unknown]
